FAERS Safety Report 18506844 (Version 5)
Quarter: 2021Q2

REPORT INFORMATION
  Report Type: Report from Study
  Country: BE (occurrence: BE)
  Receive Date: 20201116
  Receipt Date: 20210409
  Transmission Date: 20210717
  Serious: Yes (Hospitalization, Other)
  Sender: FDA-Public Use
  Company Number: NVSC2020BE017261

PATIENT
  Age: 59 Year
  Sex: Female

DRUGS (3)
  1. SANDOSTATIN LAR DEPOT [Suspect]
     Active Substance: OCTREOTIDE ACETATE
     Dosage: 20 MG
     Route: 030
  2. SANDOSTATIN LAR DEPOT [Suspect]
     Active Substance: OCTREOTIDE ACETATE
     Indication: PRODUCT USED FOR UNKNOWN INDICATION
     Dosage: 30 MG
     Route: 030
     Dates: start: 20191018
  3. SANDOSTATIN LAR DEPOT [Suspect]
     Active Substance: OCTREOTIDE ACETATE

REACTIONS (14)
  - Anorectal discomfort [Unknown]
  - Irritable bowel syndrome [Unknown]
  - Blister [Unknown]
  - Wrong technique in product usage process [Unknown]
  - Burning sensation [Not Recovered/Not Resolved]
  - Coccydynia [Not Recovered/Not Resolved]
  - Abdominal discomfort [Unknown]
  - Nephritis [Recovered/Resolved]
  - Diarrhoea [Not Recovered/Not Resolved]
  - Kidney congestion [Unknown]
  - Injection site induration [Unknown]
  - Haematuria [Not Recovered/Not Resolved]
  - Paraesthesia [Not Recovered/Not Resolved]
  - Steatorrhoea [Unknown]

NARRATIVE: CASE EVENT DATE: 20200117
